FAERS Safety Report 9695818 (Version 1)
Quarter: 2013Q4

REPORT INFORMATION
  Report Type: Spontaneous
  Country: US (occurrence: None)
  Receive Date: 20131118
  Receipt Date: 20131118
  Transmission Date: 20140711
  Serious: Yes (Other)
  Sender: FDA-Public Use
  Company Number: None

PATIENT
  Age: 77 Year
  Sex: Female
  Weight: 61.24 kg

DRUGS (1)
  1. ESCITALOPRAM 20MG [Suspect]
     Indication: ANXIETY
     Dosage: 1 PILL
     Route: 048
     Dates: start: 20131025, end: 20131106

REACTIONS (5)
  - Product substitution issue [None]
  - Hypertension [None]
  - Anxiety [None]
  - Palpitations [None]
  - Dyspnoea [None]
